FAERS Safety Report 12795283 (Version 2)
Quarter: 2016Q4

REPORT INFORMATION
  Report Type: Spontaneous
  Country: US (occurrence: US)
  Receive Date: 20160929
  Receipt Date: 20161107
  Transmission Date: 20170207
  Serious: Yes (Other)
  Sender: FDA-Public Use
  Company Number: US-BIOCOMPATIBLES UK LTD-BTG01069

PATIENT

DRUGS (9)
  1. CROFAB [Suspect]
     Active Substance: CROTALIDAE POLYVALENT IMMUNE FAB (OVINE)
     Indication: SNAKE BITE
     Dosage: 8 VIALS
     Dates: start: 20160906, end: 20160906
  2. CROFAB [Suspect]
     Active Substance: CROTALIDAE POLYVALENT IMMUNE FAB (OVINE)
     Dosage: ANOTHER 8 VIALS
     Dates: start: 20160906, end: 20160906
  3. CROFAB [Suspect]
     Active Substance: CROTALIDAE POLYVALENT IMMUNE FAB (OVINE)
     Dosage: 2 VIALS
     Dates: start: 20160908, end: 20160908
  4. CROFAB [Suspect]
     Active Substance: CROTALIDAE POLYVALENT IMMUNE FAB (OVINE)
     Dosage: 2 VIALS
     Dates: start: 20160907, end: 20160907
  5. CROFAB [Suspect]
     Active Substance: CROTALIDAE POLYVALENT IMMUNE FAB (OVINE)
     Dosage: 2 VIALS
     Dates: start: 20160907, end: 20160907
  6. CROFAB [Suspect]
     Active Substance: CROTALIDAE POLYVALENT IMMUNE FAB (OVINE)
     Dosage: ANOTHER 8 VIALS
     Dates: start: 20160906, end: 20160906
  7. CROFAB [Suspect]
     Active Substance: CROTALIDAE POLYVALENT IMMUNE FAB (OVINE)
     Dosage: 8 VIALS
     Dates: start: 20160907, end: 20160907
  8. CROFAB [Suspect]
     Active Substance: CROTALIDAE POLYVALENT IMMUNE FAB (OVINE)
     Dosage: ANOTHER 8 VIALS
     Dates: start: 20160906, end: 20160906
  9. CROFAB [Suspect]
     Active Substance: CROTALIDAE POLYVALENT IMMUNE FAB (OVINE)
     Dosage: 2 VIALS
     Dates: start: 20160907, end: 20160907

REACTIONS (4)
  - Blood fibrinogen decreased [Recovered/Resolved]
  - Platelet count decreased [Recovered/Resolved]
  - Activated partial thromboplastin time prolonged [Recovered/Resolved]
  - Compartment syndrome [Recovered/Resolved]

NARRATIVE: CASE EVENT DATE: 201609
